FAERS Safety Report 4402342-2 (Version None)
Quarter: 2004Q3

REPORT INFORMATION
  Report Type: 
  Country: None (occurrence: None)
  Receive Date: 20040715
  Receipt Date: 20040709
  Transmission Date: 20050211
  Serious: Yes (Life-Threatening)
  Sender: FDA-Public Use
  Company Number: 2004-117044-NL

PATIENT
  Age: 38 Year
  Sex: Female

DRUGS (6)
  1. MIANSERIN HYDROCHLORIDE [Suspect]
     Dosage: 10 MG
     Route: 048
     Dates: end: 20040420
  2. ETIFOXINE [Concomitant]
  3. MITOTANE [Concomitant]
  4. CYAMEMAZINE [Concomitant]
  5. AMINOGLUTETHIMIDE [Concomitant]
  6. METYRAPONE [Concomitant]

REACTIONS (15)
  - DISSEMINATED INTRAVASCULAR COAGULATION [None]
  - DRUG INTERACTION [None]
  - HAEMODYNAMIC INSTABILITY [None]
  - HEPATIC ENZYME INCREASED [None]
  - HYPERTHERMIA [None]
  - HYPOKALAEMIA [None]
  - HYPOTENSION [None]
  - INTENTIONAL OVERDOSE [None]
  - LEUKOPENIA [None]
  - LOSS OF CONSCIOUSNESS [None]
  - MYDRIASIS [None]
  - PANCREATIC ENZYMES INCREASED [None]
  - RENAL FAILURE [None]
  - SHOCK [None]
  - VENTRICULAR HYPOKINESIA [None]
